FAERS Safety Report 17565713 (Version 2)
Quarter: 2020Q2

REPORT INFORMATION
  Report Type: Spontaneous
  Country: US (occurrence: US)
  Receive Date: 20200320
  Receipt Date: 20200523
  Transmission Date: 20200713
  Serious: No
  Sender: FDA-Public Use
  Company Number: US-009507513-2003USA007183

PATIENT
  Age: 62 Year

DRUGS (1)
  1. DULERA [Suspect]
     Active Substance: FORMOTEROL FUMARATE DIHYDRATE\MOMETASONE FUROATE
     Dosage: ONE PUFF TWICE A DAY
     Route: 055
     Dates: start: 202002

REACTIONS (6)
  - Poor quality device used [Unknown]
  - Product quality issue [Unknown]
  - Expired product administered [Unknown]
  - No adverse event [Unknown]
  - Incorrect dose administered [Unknown]
  - Underdose [Unknown]

NARRATIVE: CASE EVENT DATE: 202002
